FAERS Safety Report 8307300-3 (Version None)
Quarter: 2012Q2

REPORT INFORMATION
  Report Type: 
  Country: None (occurrence: None)
  Receive Date: 20120424
  Receipt Date: 20120411
  Transmission Date: 20120825
  Serious: Yes (Other)
  Sender: FDA-Public Use
  Company Number: CH-FRI-1000029945

PATIENT
  Sex: Male

DRUGS (3)
  1. ESCITALOPRAM [Suspect]
     Indication: MAJOR DEPRESSION
  2. DICLOFENAC [Concomitant]
     Indication: ARTHRALGIA
  3. IBUPROFEN [Concomitant]
     Indication: ARTHRALGIA

REACTIONS (2)
  - UROGENITAL HAEMORRHAGE [None]
  - HAEMATOMA [None]
